FAERS Safety Report 12125241 (Version 2)
Quarter: 2016Q1

REPORT INFORMATION
  Report Type: Spontaneous
  Country: US (occurrence: US)
  Receive Date: 20160229
  Receipt Date: 20160229
  Transmission Date: 20160526
  Serious: Yes (Life-Threatening, Other)
  Sender: FDA-Public Use
  Company Number: US-ABBVIE-15P-163-1451216-00

PATIENT
  Sex: Male

DRUGS (2)
  1. ANDROGEL [Suspect]
     Active Substance: TESTOSTERONE
     Indication: ANDROGEN REPLACEMENT THERAPY
     Route: 061
     Dates: start: 2008, end: 2013
  2. TESTOSTERONE. [Suspect]
     Active Substance: TESTOSTERONE
     Indication: ANDROGEN REPLACEMENT THERAPY
     Route: 065
     Dates: start: 2008, end: 2013

REACTIONS (8)
  - Injury [Unknown]
  - Pain [Unknown]
  - Thrombosis [Unknown]
  - Emotional distress [Unknown]
  - Social problem [Unknown]
  - Economic problem [Unknown]
  - Coronary artery thrombosis [Unknown]
  - Peripheral embolism [Unknown]

NARRATIVE: CASE EVENT DATE: 200805
